FAERS Safety Report 9766517 (Version 1)
Quarter: 2013Q4

REPORT INFORMATION
  Report Type: Spontaneous
  Country: US (occurrence: US)
  Receive Date: 20131217
  Receipt Date: 20131217
  Transmission Date: 20140711
  Serious: No
  Sender: FDA-Public Use
  Company Number: US-BIOGENIDEC-2013BI118565

PATIENT
  Sex: Male

DRUGS (10)
  1. TECFIDERA [Suspect]
     Indication: MULTIPLE SCLEROSIS
     Route: 048
     Dates: start: 20131101
  2. OXCARBAZEPINE [Concomitant]
  3. CVS FISH OIL [Concomitant]
  4. CVS VITAMIN D3 [Concomitant]
  5. AMPYRA [Concomitant]
  6. VITAMIN D [Concomitant]
  7. VITAMIN B COMPLEX [Concomitant]
  8. XANAX [Concomitant]
  9. PROVIGIL [Concomitant]
  10. LAMICTAL ODT [Concomitant]

REACTIONS (4)
  - Stress [Not Recovered/Not Resolved]
  - Paraesthesia [Not Recovered/Not Resolved]
  - Mood swings [Unknown]
  - Depressed mood [Unknown]
